FAERS Safety Report 8973416 (Version 1)
Quarter: 2012Q4

REPORT INFORMATION
  Report Type: 
  Country: BR (occurrence: BR)
  Receive Date: 20121218
  Receipt Date: 20121218
  Transmission Date: 20130627
  Serious: Yes (Hospitalization)
  Sender: FDA-Public Use
  Company Number: BR-BAYER-2012-132265

PATIENT
  Sex: Male

DRUGS (1)
  1. ASPIRINA [Suspect]
     Dosage: UNK
     Route: 048

REACTIONS (3)
  - Throat irritation [Recovered/Resolved]
  - Rash papular [Recovered/Resolved]
  - Dysuria [Recovered/Resolved]
